FAERS Safety Report 21642623 (Version 1)
Quarter: 2022Q4

REPORT INFORMATION
  Report Type: Spontaneous
  Country: DE (occurrence: DE)
  Receive Date: 20221125
  Receipt Date: 20221125
  Transmission Date: 20230112
  Serious: Yes (Hospitalization)
  Sender: FDA-Public Use
  Company Number: None

PATIENT
  Age: 84 Year
  Sex: Female
  Weight: 77 kg

DRUGS (5)
  1. CARBOPLATIN [Suspect]
     Active Substance: CARBOPLATIN
     Indication: Product used for unknown indication
  2. GEMCITABINE [Suspect]
     Active Substance: GEMCITABINE
     Indication: Product used for unknown indication
  3. VILDAGLIPTIN [Concomitant]
     Active Substance: VILDAGLIPTIN
     Dosage: 50 MG, 1-0-0-0
  4. DULAGLUTIDE [Concomitant]
     Active Substance: DULAGLUTIDE
     Dosage: 0.75 MG, ONCE A WEEK
  5. FENTANYL [Concomitant]
     Active Substance: FENTANYL
     Dosage: 12 MICROGRAM/H, CHANGE EVERY THREE DAYS

REACTIONS (9)
  - General physical health deterioration [Unknown]
  - Fatigue [Unknown]
  - Presyncope [Unknown]
  - Diarrhoea [Unknown]
  - Dizziness [Unknown]
  - Constipation [Unknown]
  - Fall [Unknown]
  - Anal incontinence [Unknown]
  - Weight decreased [Unknown]
